FAERS Safety Report 13274983 (Version 3)
Quarter: 2018Q2

REPORT INFORMATION
  Report Type: Spontaneous
  Country: RO (occurrence: RO)
  Receive Date: 20170227
  Receipt Date: 20180525
  Transmission Date: 20180711
  Serious: Yes (Hospitalization)
  Sender: FDA-Public Use
  Company Number: RO-BAUSCH-BL-2017-004938

PATIENT
  Age: 35 Year
  Sex: Female

DRUGS (2)
  1. TACROLIMUS. [Concomitant]
     Active Substance: TACROLIMUS
     Indication: IMMUNOSUPPRESSANT DRUG THERAPY
     Dosage: EXTENDED-RELEASE
  2. ACYCLOVIR. [Suspect]
     Active Substance: ACYCLOVIR
     Indication: HERPES ZOSTER
     Dosage: ADMINISTERED LOCALLY FIVE TIMES A DAY
     Route: 061

REACTIONS (5)
  - Self-medication [Unknown]
  - Dermatitis contact [Recovering/Resolving]
  - Anxiety [Recovering/Resolving]
  - Skin plaque [Recovering/Resolving]
  - Pruritus [Recovering/Resolving]
